FAERS Safety Report 22120915 (Version 1)
Quarter: 2023Q1

REPORT INFORMATION
  Report Type: Spontaneous
  Country: US (occurrence: None)
  Receive Date: 20230321
  Receipt Date: 20230321
  Transmission Date: 20230418
  Serious: Yes (Other)
  Sender: FDA-Public Use
  Company Number: None

PATIENT
  Age: 87 Year
  Sex: Male
  Weight: 72 kg

DRUGS (2)
  1. XTANDI [Suspect]
     Active Substance: ENZALUTAMIDE
  2. COSMETICS [Suspect]
     Active Substance: COSMETICS

REACTIONS (2)
  - Seizure [None]
  - Therapy interrupted [None]

NARRATIVE: CASE EVENT DATE: 20220414
